FAERS Safety Report 24263283 (Version 1)
Quarter: 2024Q3

REPORT INFORMATION
  Report Type: Spontaneous
  Country: ID (occurrence: None)
  Receive Date: 20240829
  Receipt Date: 20240829
  Transmission Date: 20241016
  Serious: Yes (Life-Threatening)
  Sender: ASTRAZENECA
  Company Number: 2024A193081

PATIENT

DRUGS (1)
  1. LOKELMA [Suspect]
     Active Substance: SODIUM ZIRCONIUM CYCLOSILICATE
     Dosage: 10.0G UNKNOWN
     Route: 048

REACTIONS (1)
  - Blood potassium increased [Unknown]
